FAERS Safety Report 4376201-8 (Version None)
Quarter: 2004Q2

REPORT INFORMATION
  Report Type: 
  Country: None (occurrence: None)
  Receive Date: 20040610
  Receipt Date: 20040610
  Transmission Date: 20050107
  Serious: No
  Sender: FDA-Public Use
  Company Number: None

PATIENT
  Age: 33 Year
  Sex: Male

DRUGS (10)
  1. AVELOX [Suspect]
     Indication: DIABETIC FOOT
     Dosage: 400 MG DAILY PO
     Route: 048
     Dates: start: 20040410, end: 20040419
  2. PROGRAF [Concomitant]
  3. LIPITOR [Concomitant]
  4. NORVASC [Concomitant]
  5. IMDUR [Concomitant]
  6. SYNTHROID [Concomitant]
  7. CELLCEPT [Concomitant]
  8. PREDNISONE [Concomitant]
  9. ASPIRIN [Concomitant]
  10. COZAAR [Concomitant]

REACTIONS (1)
  - NEPHRITIS INTERSTITIAL [None]
